FAERS Safety Report 7683940-X (Version None)
Quarter: 2011Q3

REPORT INFORMATION
  Report Type: 
  Country: None (occurrence: None)
  Receive Date: 20110815
  Receipt Date: 20110801
  Transmission Date: 20111222
  Serious: Yes (Hospitalization)
  Sender: FDA-Public Use
  Company Number: PHHY2011ZA70813

PATIENT
  Sex: Male

DRUGS (3)
  1. DIOVAN [Suspect]
     Indication: HYPERTENSION
     Dosage: UNK UKN, UNK
     Dates: start: 20090101
  2. VALSARTAN [Concomitant]
     Dosage: 320 MG, UNK
     Dates: start: 20110718
  3. ZOMVEK [Concomitant]
     Dosage: 160 MG, BID
     Dates: start: 20110530

REACTIONS (4)
  - CYANOSIS [None]
  - BLADDER DISORDER [None]
  - HEAT EXHAUSTION [None]
  - LOSS OF CONSCIOUSNESS [None]
